FAERS Safety Report 14715204 (Version 7)
Quarter: 2023Q2

REPORT INFORMATION
  Report Type: Spontaneous
  Country: CA (occurrence: CA)
  Receive Date: 20180404
  Receipt Date: 20230509
  Transmission Date: 20230721
  Serious: Yes (Hospitalization)
  Sender: FDA-Public Use
  Company Number: CA-BIOMARINAP-CA-2018-117656

PATIENT

DRUGS (6)
  1. VIMIZIM [Suspect]
     Active Substance: ELOSULFASE ALFA
     Indication: Mucopolysaccharidosis IV
     Dosage: 2 MG/KG, QW
     Route: 042
     Dates: start: 20141020
  2. VIMIZIM [Suspect]
     Active Substance: ELOSULFASE ALFA
     Dosage: 2 MG/KG, QW
     Route: 042
     Dates: start: 20110725
  3. Atasol [Concomitant]
     Indication: Premedication
     Dosage: 325 MG, SINGLE
     Route: 048
  4. Reactine [Concomitant]
     Indication: Premedication
     Dosage: 10 MG, SINGLE
     Route: 048
  5. NAPROXEN [Concomitant]
     Active Substance: NAPROXEN
     Indication: Product used for unknown indication
     Dosage: UNK, BID
     Route: 048
     Dates: start: 201406
  6. PREVACID [Concomitant]
     Active Substance: LANSOPRAZOLE
     Indication: Product used for unknown indication
     Dosage: 30 MILLIGRAM, QD
     Route: 048
     Dates: start: 201406

REACTIONS (9)
  - Spinal cord compression [Unknown]
  - Back pain [Unknown]
  - Wound secretion [Unknown]
  - Scab [Unknown]
  - Spinal stenosis [Unknown]
  - Pain in extremity [Not Recovered/Not Resolved]
  - Panic attack [Unknown]
  - Hyperventilation [Unknown]
  - Heart rate increased [Unknown]
